FAERS Safety Report 6024913-2 (Version None)
Quarter: 2008Q4

REPORT INFORMATION
  Report Type: 
  Country: None (occurrence: None)
  Receive Date: 20081231
  Receipt Date: 20051214
  Transmission Date: 20090506
  Serious: Yes (Hospitalization)
  Sender: FDA-Public Use
  Company Number: AU-PFIZER INC-2004193694AU

PATIENT

DRUGS (3)
  1. CELECOXIB [Suspect]
     Indication: POLYP COLORECTAL
     Dosage: 200 MG, 2X/DAY
     Route: 048
     Dates: start: 20010215, end: 20040121
  2. LOPERAMIDE HCL [Concomitant]
     Route: 065
     Dates: start: 20010613
  3. MEBEVERINE [Concomitant]
     Route: 065
     Dates: start: 20010115

REACTIONS (1)
  - ANGINA UNSTABLE [None]
